FAERS Safety Report 17191237 (Version 2)
Quarter: 2021Q4

REPORT INFORMATION
  Report Type: Spontaneous
  Country: JP (occurrence: JP)
  Receive Date: 20191223
  Receipt Date: 20211122
  Transmission Date: 20220303
  Serious: Yes (Other)
  Sender: FDA-Public Use
  Company Number: JP-NOVARTISPH-NVSJ2019JP005834

PATIENT
  Age: 43 Year
  Sex: Male

DRUGS (7)
  1. AFINITOR [Suspect]
     Active Substance: EVEROLIMUS
     Indication: Pancreatic neuroendocrine tumour
     Dosage: UNK
     Route: 048
     Dates: start: 20170831
  2. SANDOSTATIN [Suspect]
     Active Substance: OCTREOTIDE ACETATE
     Indication: Pancreatic neuroendocrine tumour
     Dosage: UNK
     Route: 058
     Dates: start: 20161110
  3. SANDOSTATIN [Suspect]
     Active Substance: OCTREOTIDE ACETATE
  4. SANDOSTATIN [Suspect]
     Active Substance: OCTREOTIDE ACETATE
  5. SUTENT [Concomitant]
     Active Substance: SUNITINIB MALATE
     Indication: Pancreatic neuroendocrine tumour
     Dosage: UNK
     Route: 065
     Dates: start: 20161110, end: 20170615
  6. STREPTOZOCIN [Concomitant]
     Active Substance: STREPTOZOCIN
     Indication: Product used for unknown indication
     Dosage: UNK
     Route: 065
     Dates: start: 20180723
  7. LANREOTIDE ACETATE [Concomitant]
     Active Substance: LANREOTIDE ACETATE
     Indication: Product used for unknown indication
     Dosage: UNK
     Route: 065
     Dates: start: 201908

REACTIONS (8)
  - Pancreatic neuroendocrine tumour [Unknown]
  - Malignant neoplasm progression [Unknown]
  - Hepatic neoplasm [Unknown]
  - Retinal oedema [Unknown]
  - Arthritis [Unknown]
  - Depression [Unknown]
  - Blood glucagon increased [Unknown]
  - Rhinitis [Unknown]

NARRATIVE: CASE EVENT DATE: 20170615
